FAERS Safety Report 15485308 (Version 1)
Quarter: 2018Q4

REPORT INFORMATION
  Report Type: Spontaneous
  Country: US (occurrence: US)
  Receive Date: 20181010
  Receipt Date: 20181010
  Transmission Date: 20190205
  Serious: No
  Sender: FDA-Public Use
  Company Number: US-ROCHE-2152730

PATIENT
  Sex: Male
  Weight: 55.39 kg

DRUGS (7)
  1. BACLOFEN. [Concomitant]
     Active Substance: BACLOFEN
     Route: 048
     Dates: start: 20180510, end: 20180709
  2. DECADRON [Concomitant]
     Active Substance: DEXAMETHASONE
     Dosage: ONGOING: UNKNOWN
     Route: 048
     Dates: start: 20180709
  3. DECADRON [Concomitant]
     Active Substance: DEXAMETHASONE
     Route: 048
     Dates: start: 20180510, end: 20180709
  4. PANTOPRAZOLE [Concomitant]
     Active Substance: PANTOPRAZOLE
     Dosage: ONGOING: UNKNOWN
     Route: 048
     Dates: start: 20180606
  5. ALECENSA [Suspect]
     Active Substance: ALECTINIB HYDROCHLORIDE
     Indication: NEOPLASM MALIGNANT
     Dosage: TAKE 4 CAPSULES (600 MG)
     Route: 048
     Dates: start: 20180514
  6. ALECENSA [Suspect]
     Active Substance: ALECTINIB HYDROCHLORIDE
     Dosage: 4 CAPSULES 2X A DAY; ONGOING
     Route: 048
     Dates: start: 20180515
  7. DOCUSATE SODIUM. [Concomitant]
     Active Substance: DOCUSATE SODIUM
     Dosage: ONGOING: UNKNOWN
     Route: 048
     Dates: start: 20180606

REACTIONS (1)
  - Skin exfoliation [Unknown]
